FAERS Safety Report 24463559 (Version 1)
Quarter: 2024Q4

REPORT INFORMATION
  Report Type: Spontaneous
  Country: US (occurrence: US)
  Receive Date: 20241018
  Receipt Date: 20241018
  Transmission Date: 20250114
  Serious: Yes (Hospitalization, Other)
  Sender: FRESENIUS KABI
  Company Number: US-FreseniusKabi-FK202415596

PATIENT
  Age: 61 Year
  Sex: Male

DRUGS (1)
  1. HEPARIN [Suspect]
     Active Substance: HEPARIN SODIUM
     Indication: Thrombosis
     Route: 058

REACTIONS (2)
  - Heparin-induced thrombocytopenia [Unknown]
  - Ocular ischaemic syndrome [Recovering/Resolving]
